FAERS Safety Report 21187193 (Version 1)
Quarter: 2022Q3

REPORT INFORMATION
  Report Type: Report from Study
  Country: BG (occurrence: BG)
  Receive Date: 20220808
  Receipt Date: 20220808
  Transmission Date: 20221027
  Serious: Yes (Other)
  Sender: FDA-Public Use
  Company Number: BG-NOVARTISPH-NVSC2022BG178541

PATIENT
  Age: 35 Year
  Sex: Male

DRUGS (7)
  1. ENTRESTO [Suspect]
     Active Substance: SACUBITRIL\VALSARTAN
     Indication: Cardiac failure
     Dosage: 50 MG, BID (24/26 MG)
     Route: 048
  2. ENTRESTO [Suspect]
     Active Substance: SACUBITRIL\VALSARTAN
     Dosage: 100 MG, BID (49/51 MG)
     Route: 048
     Dates: start: 20210917
  3. ENTRESTO [Suspect]
     Active Substance: SACUBITRIL\VALSARTAN
     Dosage: 50 MG, BID (24/26 MG)
     Route: 048
  4. TRIFAS [Concomitant]
     Indication: Cardiac failure
     Dosage: 5 MG, QD (DAILY IN THE MORNING)
     Route: 048
  5. CARDITRUST [Concomitant]
     Indication: Cardiac failure
     Dosage: 25 MG, QD (DAILY IN THE MORNING)
     Route: 048
  6. TRIMETAZIDINE DIHYDROCHLORIDE [Concomitant]
     Active Substance: TRIMETAZIDINE DIHYDROCHLORIDE
     Indication: Cardiac failure
     Dosage: 1 DOSAGE FORM, BID
     Route: 048
  7. BISOPROLOL FUMARATE [Concomitant]
     Active Substance: BISOPROLOL FUMARATE
     Indication: Atrial fibrillation
     Dosage: 0.5 DOSAGE FORM, QD (1/2 TABLET OF 5 MG)
     Route: 048

REACTIONS (1)
  - Somatic symptom disorder [Recovered/Resolved]

NARRATIVE: CASE EVENT DATE: 20210920
